FAERS Safety Report 10607451 (Version 1)
Quarter: 2014Q4

REPORT INFORMATION
  Report Type: Spontaneous
  Country: US (occurrence: None)
  Receive Date: 20141124
  Receipt Date: 20141124
  Transmission Date: 20150529
  Serious: Yes (Hospitalization)
  Sender: FDA-Public Use
  Company Number: None

PATIENT
  Age: 63 Year
  Sex: Female
  Weight: 95.1 kg

DRUGS (6)
  1. FLEXERIL [Concomitant]
     Active Substance: CYCLOBENZAPRINE HYDROCHLORIDE
  2. GABAPENTIN. [Suspect]
     Active Substance: GABAPENTIN
     Dosage: ?  ?  PO?RECENT
     Route: 048
  3. BENICAR [Concomitant]
     Active Substance: OLMESARTAN MEDOXOMIL
  4. METHADONE [Suspect]
     Active Substance: METHADONE HYDROCHLORIDE
     Indication: PAIN
     Dosage: 10MG TID PO?CHRONIC
     Route: 048
  5. CLONAZEPAM. [Concomitant]
     Active Substance: CLONAZEPAM
  6. RISPERIDONE. [Concomitant]
     Active Substance: RISPERIDONE

REACTIONS (7)
  - Treatment noncompliance [None]
  - Encephalopathy [None]
  - Drug interaction [None]
  - Panic attack [None]
  - Intentional overdose [None]
  - Respiratory distress [None]
  - Dysarthria [None]

NARRATIVE: CASE EVENT DATE: 20140315
